FAERS Safety Report 6791012-1 (Version None)
Quarter: 2010Q2

REPORT INFORMATION
  Report Type: 
  Country: None (occurrence: None)
  Receive Date: 20100624
  Receipt Date: 20100615
  Transmission Date: 20101027
  Serious: Yes (Other)
  Sender: FDA-Public Use
  Company Number: US-AMGEN-QUU418639

PATIENT
  Sex: Female

DRUGS (2)
  1. ENBREL [Suspect]
     Route: 064
     Dates: start: 20040701, end: 20091115
  2. ZOLOFT [Concomitant]
     Route: 064

REACTIONS (2)
  - CEREBRAL CYST [None]
  - JAUNDICE NEONATAL [None]
